FAERS Safety Report 25832833 (Version 1)
Quarter: 2025Q3

REPORT INFORMATION
  Report Type: Report from Study
  Country: US (occurrence: US)
  Receive Date: 20250922
  Receipt Date: 20250922
  Transmission Date: 20251021
  Serious: Yes (Hospitalization, Other)
  Sender: ABBVIE
  Company Number: US-ABBVIE-6468059

PATIENT
  Sex: Female

DRUGS (1)
  1. RINVOQ [Suspect]
     Active Substance: UPADACITINIB
     Indication: Psoriasis
     Route: 048

REACTIONS (8)
  - Diverticulitis [Unknown]
  - Pelvic fracture [Recovering/Resolving]
  - Clostridium difficile infection [Unknown]
  - Fall [Unknown]
  - Procedural pain [Unknown]
  - Walking aid user [Unknown]
  - Skin discomfort [Unknown]
  - Device issue [Unknown]

NARRATIVE: CASE EVENT DATE: 20250717
